FAERS Safety Report 6730597-8 (Version None)
Quarter: 2010Q2

REPORT INFORMATION
  Report Type: 
  Country: None (occurrence: None)
  Receive Date: 20100513
  Receipt Date: 20100427
  Transmission Date: 20101027
  Serious: Yes (Hospitalization)
  Sender: FDA-Public Use
  Company Number: 2010000170

PATIENT
  Age: 72 Year
  Sex: Male

DRUGS (19)
  1. ERLOTINIB (ERLOTINIB) (TABLET) (ERLOTINIB) [Suspect]
     Indication: RENAL CELL CARCINOMA
     Dosage: 150 MG, QD, ORAL; 100 MG, QD, ORAL; 50 MG, QD,ORAL
     Route: 048
     Dates: start: 20050209, end: 20071024
  2. ERLOTINIB (ERLOTINIB) (TABLET) (ERLOTINIB) [Suspect]
     Indication: RENAL CELL CARCINOMA
     Dosage: 150 MG, QD, ORAL; 100 MG, QD, ORAL; 50 MG, QD,ORAL
     Route: 048
     Dates: start: 20040909, end: 20091208
  3. ERLOTINIB (ERLOTINIB) (TABLET) (ERLOTINIB) [Suspect]
     Indication: RENAL CELL CARCINOMA
     Dosage: 150 MG, QD, ORAL; 100 MG, QD, ORAL; 50 MG, QD,ORAL
     Route: 048
     Dates: start: 20071025, end: 20091208
  4. BEVACIZUMAB [Suspect]
     Indication: RENAL CELL CARCINOMA
     Dosage: 1348 MG, INTRAVENOUS
     Route: 042
     Dates: start: 20040909, end: 20091208
  5. GLEEVEC [Suspect]
     Indication: RENAL CELL CARCINOMA
     Dosage: 400 MG, ORAL
     Route: 048
     Dates: start: 20040909, end: 20050922
  6. HUMULIN 70/30 [Concomitant]
  7. PROPAFENONE HYDROCHLORIDE [Concomitant]
  8. LOVASTATIN [Concomitant]
  9. PREVACID [Concomitant]
  10. VALIUM [Concomitant]
  11. SOMA [Concomitant]
  12. ASPIRIN [Concomitant]
  13. METAMUCIL-2 [Concomitant]
  14. HUMULIN R [Concomitant]
  15. SIMVASTATIN [Concomitant]
  16. ENOXAPARIN SODIUM [Concomitant]
  17. LEVAQUIN [Concomitant]
  18. ALLOPURINOL [Concomitant]
  19. TEGASEROD (TEGASEROD) [Concomitant]

REACTIONS (2)
  - CONTUSION [None]
  - ISCHAEMIC STROKE [None]
